FAERS Safety Report 15734824 (Version 1)
Quarter: 2018Q4

REPORT INFORMATION
  Report Type: Spontaneous
  Country: US (occurrence: US)
  Receive Date: 20181218
  Receipt Date: 20181218
  Transmission Date: 20190205
  Serious: Yes (Other)
  Sender: FDA-Public Use
  Company Number: US-BAYER-2018-229010

PATIENT
  Age: 83 Year
  Sex: Female

DRUGS (1)
  1. ACETYLSALICYLIC ACID({=100 MG) [Suspect]
     Active Substance: ASPIRIN
     Indication: TRANSIENT ISCHAEMIC ATTACK
     Dosage: UNK

REACTIONS (5)
  - Haemorrhagic anaemia [None]
  - Gastrointestinal haemorrhage [None]
  - Peptic ulcer [None]
  - Melaena [None]
  - Dieulafoy^s vascular malformation [None]
